FAERS Safety Report 17684892 (Version 1)
Quarter: 2020Q2

REPORT INFORMATION
  Report Type: Spontaneous
  Country: US (occurrence: US)
  Receive Date: 20200420
  Receipt Date: 20200420
  Transmission Date: 20200714
  Serious: Yes (Other)
  Sender: FDA-Public Use
  Company Number: US-ENDO PHARMACEUTICALS INC-2020-003352

PATIENT
  Age: 68 Year
  Sex: Male
  Weight: 81.63 kg

DRUGS (2)
  1. XIAFLEX [Suspect]
     Active Substance: COLLAGENASE CLOSTRIDIUM HISTOLYTICUM
     Dosage: 0.58 MG, CYCLE 1, INJECTION 1
     Route: 065
     Dates: start: 20200211
  2. XIAFLEX [Suspect]
     Active Substance: COLLAGENASE CLOSTRIDIUM HISTOLYTICUM
     Indication: PEYRONIE^S DISEASE
     Dosage: 0.58 MG, CYCLE 1, INJECTION 2
     Route: 065
     Dates: start: 20200213, end: 20200213

REACTIONS (2)
  - Fracture of penis [Unknown]
  - Corpora cavernosa surgery [Recovered/Resolved]

NARRATIVE: CASE EVENT DATE: 20200328
